FAERS Safety Report 25777967 (Version 1)
Quarter: 2025Q3

REPORT INFORMATION
  Report Type: Spontaneous
  Country: US (occurrence: None)
  Receive Date: 20250906
  Receipt Date: 20250906
  Transmission Date: 20251020
  Serious: Yes (Hospitalization, Disabling)
  Sender: FDA-CTU
  Company Number: None

PATIENT
  Age: 58 Year
  Sex: Female
  Weight: 105.75 kg

DRUGS (9)
  1. MOUNJARO [Suspect]
     Active Substance: TIRZEPATIDE
     Indication: Glycosylated haemoglobin increased
     Route: 050
     Dates: end: 20250711
  2. MOUNJARO [Suspect]
     Active Substance: TIRZEPATIDE
     Indication: Blood cholesterol increased
  3. MOUNJARO [Suspect]
     Active Substance: TIRZEPATIDE
     Indication: Sleep apnoea syndrome
  4. MOUNJARO [Suspect]
     Active Substance: TIRZEPATIDE
     Indication: Obesity
  5. LEVOTHYROXINE [Concomitant]
     Active Substance: LEVOTHYROXINE
  6. ELIQUIS [Concomitant]
     Active Substance: APIXABAN
  7. METFORMIN [Concomitant]
     Active Substance: METFORMIN HYDROCHLORIDE
  8. ROSUVASTATIN [Concomitant]
     Active Substance: ROSUVASTATIN
  9. COENZYME Q10 [Concomitant]
     Active Substance: DIETARY SUPPLEMENT\UBIDECARENONE

REACTIONS (1)
  - Deep vein thrombosis [None]

NARRATIVE: CASE EVENT DATE: 20250711
